FAERS Safety Report 22908937 (Version 3)
Quarter: 2023Q4

REPORT INFORMATION
  Report Type: Report from Study
  Country: US (occurrence: US)
  Receive Date: 20230905
  Receipt Date: 20231031
  Transmission Date: 20240109
  Serious: Yes (Hospitalization, Other)
  Sender: FDA-Public Use
  Company Number: US-SEATTLE GENETICS-2023SGN09806

PATIENT
  Age: 54 Year
  Sex: Female

DRUGS (3)
  1. TUCATINIB [Suspect]
     Active Substance: TUCATINIB
     Indication: Product used for unknown indication
     Dosage: 150 MG
     Route: 065
  2. TUCATINIB [Suspect]
     Active Substance: TUCATINIB
     Dosage: 150 MG
     Route: 065
  3. TUCATINIB [Suspect]
     Active Substance: TUCATINIB
     Dosage: 50 MG
     Route: 065

REACTIONS (6)
  - Rheumatoid arthritis [Unknown]
  - Haematoma [Unknown]
  - Internal haemorrhage [Unknown]
  - Thrombosis [Unknown]
  - Palmar-plantar erythrodysaesthesia syndrome [Unknown]
  - Urticaria [Unknown]

NARRATIVE: CASE EVENT DATE: 20230831
